FAERS Safety Report 15371293 (Version 1)
Quarter: 2018Q4

REPORT INFORMATION
  Report Type: Spontaneous
  Country: HU (occurrence: HU)
  Receive Date: 20180911
  Receipt Date: 20180911
  Transmission Date: 20190204
  Serious: Yes (Hospitalization, Other)
  Sender: FDA-Public Use
  Company Number: HU-ASTRAZENECA-2018SF11139

PATIENT
  Age: 33 Year
  Sex: Female

DRUGS (4)
  1. RIVOTRIL [Suspect]
     Active Substance: CLONAZEPAM
     Dosage: PRESCRIBED DOSE: 0.5MG THREE TIMES DAILY
     Route: 065
  2. KETILEPT [Suspect]
     Active Substance: QUETIAPINE FUMARATE
     Dosage: PRESCRIBED DOSE: 150MG EVENINGS
     Route: 048
  3. FLUANXOL [Concomitant]
     Active Substance: FLUPENTIXOL
     Route: 030
  4. XIGDUO XR [Concomitant]
     Active Substance: DAPAGLIFLOZIN PROPANEDIOL\METFORMIN HYDROCHLORIDE
     Indication: DIABETES MELLITUS
     Route: 048
     Dates: end: 201807

REACTIONS (3)
  - Intentional overdose [Unknown]
  - Loss of consciousness [Recovered/Resolved]
  - Pneumonia aspiration [Recovered/Resolved]

NARRATIVE: CASE EVENT DATE: 201807
